FAERS Safety Report 12195955 (Version 1)
Quarter: 2016Q1

REPORT INFORMATION
  Report Type: Spontaneous
  Country: US (occurrence: US)
  Receive Date: 20160321
  Receipt Date: 20160321
  Transmission Date: 20160526
  Serious: No
  Sender: FDA-Public Use
  Company Number: US-ENDO PHARMACEUTICALS INC.-2015-004072

PATIENT
  Age: 60 Year
  Sex: Female
  Weight: 46.76 kg

DRUGS (5)
  1. CELEXA [Concomitant]
     Active Substance: CITALOPRAM HYDROBROMIDE
     Indication: PRODUCT USED FOR UNKNOWN INDICATION
  2. BENTYL [Concomitant]
     Active Substance: DICYCLOMINE HYDROCHLORIDE
     Indication: ABDOMINAL PAIN
  3. XIAFLEX [Suspect]
     Active Substance: COLLAGENASE CLOSTRIDIUM HISTOLYTICUM
     Indication: DUPUYTREN^S CONTRACTURE
     Route: 026
     Dates: start: 20140915, end: 20140915
  4. IMITREX [Concomitant]
     Active Substance: SUMATRIPTAN SUCCINATE
     Indication: MIGRAINE
  5. VALIUM [Concomitant]
     Active Substance: DIAZEPAM
     Indication: FEELING OF RELAXATION

REACTIONS (7)
  - Drug ineffective [Recovered/Resolved]
  - Lymphadenopathy [Unknown]
  - Condition aggravated [Unknown]
  - Injection site pain [Recovered/Resolved]
  - Injection site swelling [Unknown]
  - Dupuytren^s contracture [Unknown]
  - Injection site bruising [Unknown]

NARRATIVE: CASE EVENT DATE: 201409
